FAERS Safety Report 13860921 (Version 2)
Quarter: 2017Q3

REPORT INFORMATION
  Report Type: Report from Study
  Country: JP (occurrence: JP)
  Receive Date: 20170811
  Receipt Date: 20170920
  Transmission Date: 20171127
  Serious: Yes (Death)
  Sender: FDA-Public Use
  Company Number: JP-ELI_LILLY_AND_COMPANY-JP201611003164

PATIENT
  Age: 71 Year
  Sex: Female
  Weight: 45.7 kg

DRUGS (8)
  1. RAMUCIRUMAB [Suspect]
     Active Substance: RAMUCIRUMAB
     Dosage: 380 MG, UNK
     Route: 042
     Dates: start: 20160929, end: 20160929
  2. RAMUCIRUMAB [Suspect]
     Active Substance: RAMUCIRUMAB
     Indication: GASTRIC CANCER STAGE IV
     Dosage: 423 MG, UNK
     Route: 042
     Dates: start: 20160512, end: 20160512
  3. RAMUCIRUMAB [Suspect]
     Active Substance: RAMUCIRUMAB
     Dosage: 360 MG, OTHER
     Route: 042
     Dates: start: 20160609, end: 20160915
  4. PACLITAXEL. [Concomitant]
     Active Substance: PACLITAXEL
     Dosage: 112 MG, OTHER
     Route: 042
     Dates: start: 20160519, end: 20160526
  5. PACLITAXEL. [Concomitant]
     Active Substance: PACLITAXEL
     Dosage: 110 MG, OTHER
     Route: 042
     Dates: start: 20160609, end: 20161027
  6. RAMUCIRUMAB [Suspect]
     Active Substance: RAMUCIRUMAB
     Dosage: 370 UNK, UNK
     Route: 042
     Dates: start: 20161013, end: 20161027
  7. RAMUCIRUMAB [Suspect]
     Active Substance: RAMUCIRUMAB
     Dosage: 400 MG, OTHER
     Route: 042
     Dates: start: 20160526, end: 20160526
  8. PACLITAXEL. [Concomitant]
     Active Substance: PACLITAXEL
     Indication: GASTRIC CANCER STAGE IV
     Dosage: 119 MG, OTHER
     Route: 042
     Dates: start: 20160512, end: 20160512

REACTIONS (1)
  - Death [Fatal]

NARRATIVE: CASE EVENT DATE: 20161108
